FAERS Safety Report 7370116-9 (Version None)
Quarter: 2011Q1

REPORT INFORMATION
  Report Type: 
  Country: None (occurrence: None)
  Receive Date: 20110323
  Receipt Date: 20110310
  Transmission Date: 20110831
  Serious: Yes (Hospitalization)
  Sender: FDA-Public Use
  Company Number: PHHY2010US89877

PATIENT
  Sex: Female

DRUGS (19)
  1. EXTAVIA [Suspect]
     Dosage: 0.25 MG, QOD
     Route: 058
     Dates: start: 20101119, end: 20110224
  2. IBUPROFEN [Concomitant]
     Dosage: 800 MG, TID
  3. WELLBUTRIN [Concomitant]
     Dosage: 100 MG, BID
  4. BACLOFEN [Concomitant]
     Dosage: 20 MG, TID
  5. PRAVASTATIN [Concomitant]
     Dosage: 20 MG, QHS
  6. EXEDRINE MIGRAINE [Concomitant]
     Dosage: UNK
  7. GABAPENTIN [Concomitant]
     Dosage: 600 MG, QID
  8. KLONOPIN [Concomitant]
     Dosage: 0.5 MG, QHS
  9. VICODIN [Concomitant]
     Dosage: 7.5/750 QID
  10. VITAMIN D [Concomitant]
     Dosage: 1000 IU, QD
  11. PROPRANOLOL [Concomitant]
     Dosage: 20 MG, TID
  12. LASIX [Concomitant]
     Dosage: 20 MG, PRN
  13. NORTRIPTYLINE [Concomitant]
     Dosage: 50 MG, QHS
  14. MORPHINE [Concomitant]
     Dosage: 15 MG, Q8H
  15. EXTAVIA [Suspect]
     Indication: MULTIPLE SCLEROSIS
     Dosage: 0.187 MG (0.75 ML), QOD
     Route: 058
  16. NIASPAN [Concomitant]
     Dosage: 500 MG, QHS
  17. TRILIPIX [Concomitant]
     Dosage: 135 MG, QHS
  18. ZONEGRAN [Concomitant]
     Dosage: 100 MG, QHS
  19. MORPHINE [Concomitant]
     Dosage: 15 MG, Q12H AND Q8H

REACTIONS (8)
  - BALANCE DISORDER [None]
  - NAUSEA [None]
  - MIGRAINE [None]
  - VISION BLURRED [None]
  - VOMITING [None]
  - FATIGUE [None]
  - HYPERHIDROSIS [None]
  - DIZZINESS [None]
